FAERS Safety Report 6008788-3 (Version None)
Quarter: 2008Q4

REPORT INFORMATION
  Report Type: 
  Country: None (occurrence: None)
  Receive Date: 20081217
  Receipt Date: 20081210
  Transmission Date: 20090506
  Serious: Yes (Hospitalization)
  Sender: FDA-Public Use
  Company Number: IT-AMGEN-UK323186

PATIENT
  Sex: Male

DRUGS (3)
  1. PANITUMUMAB [Suspect]
     Indication: SQUAMOUS CELL CARCINOMA
     Route: 042
     Dates: start: 20081006, end: 20081006
  2. PANITUMUMAB [Suspect]
     Route: 042
     Dates: start: 20081124, end: 20081124
  3. PANITUMUMAB - STUDY PROCEDURE [Suspect]

REACTIONS (1)
  - PNEUMONIA [None]
